FAERS Safety Report 8776991 (Version 1)
Quarter: 2012Q4

REPORT INFORMATION
  Report Type: 
  Country: JP (occurrence: JP)
  Receive Date: 20120911
  Receipt Date: 20120911
  Transmission Date: 20130627
  Serious: Yes (Other)
  Sender: FDA-Public Use
  Company Number: JP-GLAXOSMITHKLINE-B0828695A

PATIENT
  Age: 61 Year
  Sex: Male

DRUGS (1)
  1. SERETIDE (50MCG/100MCG) [Suspect]
     Indication: ASTHMA
     Route: 055
     Dates: start: 20120607

REACTIONS (8)
  - Hyperthyroidism [Recovered/Resolved]
  - Blood thyroid stimulating hormone increased [Recovered/Resolved]
  - Tri-iodothyronine free increased [Recovered/Resolved]
  - Thyroxine free increased [Recovered/Resolved]
  - Malaise [Recovered/Resolved]
  - Gait disturbance [Recovered/Resolved]
  - Eye pain [Recovered/Resolved]
  - Mental disorder [Recovered/Resolved]
